FAERS Safety Report 7638324-7 (Version None)
Quarter: 2011Q3

REPORT INFORMATION
  Report Type: 
  Country: None (occurrence: None)
  Receive Date: 20110727
  Receipt Date: 20110727
  Transmission Date: 20111222
  Serious: Yes (Hospitalization)
  Sender: FDA-Public Use
  Company Number: None

PATIENT
  Age: 64 Year
  Sex: Male
  Weight: 82.6 kg

DRUGS (3)
  1. RIFAMPIN [Concomitant]
  2. NAFCILLIN [Suspect]
     Indication: STAPHYLOCOCCAL BACTERAEMIA
     Dosage: 2G
     Route: 041
     Dates: start: 20110620, end: 20110712
  3. NAFCILLIN [Suspect]
     Indication: ARTHRITIS BACTERIAL
     Dosage: 2G
     Route: 041
     Dates: start: 20110620, end: 20110712

REACTIONS (4)
  - THROMBOCYTOPENIA [None]
  - GRANULOCYTES MATURATION ARREST [None]
  - PNEUMONIA [None]
  - NEUTROPENIA [None]
